FAERS Safety Report 15570395 (Version 3)
Quarter: 2019Q1

REPORT INFORMATION
  Report Type: Report from Study
  Country: AU (occurrence: AU)
  Receive Date: 20181031
  Receipt Date: 20190211
  Transmission Date: 20190417
  Serious: Yes (Other)
  Sender: FDA-Public Use
  Company Number: AU-JNJFOC-20181038182

PATIENT
  Sex: Male

DRUGS (1)
  1. IMBRUVICA [Suspect]
     Active Substance: IBRUTINIB
     Indication: CHRONIC LYMPHOCYTIC LEUKAEMIA
     Route: 048
     Dates: start: 201803

REACTIONS (5)
  - Fatigue [Unknown]
  - Pain in extremity [Unknown]
  - Rectal haemorrhage [Unknown]
  - Arthralgia [Recovering/Resolving]
  - Abnormal dreams [Unknown]
